FAERS Safety Report 5337735-2 (Version None)
Quarter: 2007Q1

REPORT INFORMATION
  Report Type: 
  Country: None (occurrence: None)
  Receive Date: 20070308
  Receipt Date: 20061212
  Transmission Date: 20070707
  Serious: No
  Sender: FDA-Public Use
  Company Number: 2006-BP-14419BP

PATIENT
  Sex: Female

DRUGS (7)
  1. SPIRIVA [Suspect]
     Indication: CHRONIC OBSTRUCTIVE PULMONARY DISEASE
     Dosage: 18 MCG (18 MCG, 1 IN 1 D), IH
     Route: 055
     Dates: start: 20061012, end: 20061116
  2. CLONOPIN [Concomitant]
  3. OXYBUTIN (OXYBUTYNIN HYDROCHLORIDE) [Concomitant]
  4. LEVOXYL [Concomitant]
  5. ASPIRIN [Concomitant]
  6. MULTIVITAMIN (MULTIVITAMIN) [Concomitant]
  7. SENOKOT (SENNA ALEXANDRINA) [Concomitant]

REACTIONS (2)
  - CYSTITIS [None]
  - URINARY TRACT INFECTION [None]
